FAERS Safety Report 7539047-5 (Version None)
Quarter: 2011Q2

REPORT INFORMATION
  Report Type: 
  Country: None (occurrence: None)
  Receive Date: 20110610
  Receipt Date: 20010109
  Transmission Date: 20111010
  Serious: Yes (Hospitalization)
  Sender: FDA-Public Use
  Company Number: PHBS2001JP00593

PATIENT
  Sex: Male

DRUGS (5)
  1. NIFEDIPINE [Concomitant]
  2. BEZAFIBRATE [Concomitant]
  3. CIMETIDINE [Concomitant]
  4. NATEGLINIDE [Suspect]
     Dosage: 270 MG, QD
     Route: 048
     Dates: start: 20000916, end: 20001010
  5. PIRENZEPINE [Concomitant]

REACTIONS (2)
  - BILE DUCT STONE [None]
  - BILIARY TRACT INFECTION [None]
